FAERS Safety Report 5276184-2 (Version None)
Quarter: 2007Q1

REPORT INFORMATION
  Report Type: 
  Country: None (occurrence: None)
  Receive Date: 20070321
  Receipt Date: 20070102
  Transmission Date: 20070707
  Serious: Yes (Hospitalization)
  Sender: FDA-Public Use
  Company Number: 234100K06USA

PATIENT
  Age: 41 Year
  Sex: Male

DRUGS (6)
  1. REBIF [Suspect]
     Indication: MULTIPLE SCLEROSIS
     Dosage: 44 MCG, 3 IN 1 WEEKS, SUBCUTANEOUS
     Route: 058
     Dates: start: 20060421
  2. DILANTIN [Concomitant]
  3. LAMICTAL [Concomitant]
  4. HUMALOG [Concomitant]
  5. HUMALIN (INSULIN) [Concomitant]
  6. OXYBUTYNIN (OXYBUTYNIN /00538901/) [Concomitant]

REACTIONS (2)
  - AURA [None]
  - NERVOUSNESS [None]
